FAERS Safety Report 5259870-X (Version None)
Quarter: 2007Q1

REPORT INFORMATION
  Report Type: 
  Country: None (occurrence: None)
  Receive Date: 20070307
  Receipt Date: 20070227
  Transmission Date: 20070707
  Serious: Yes (Hospitalization)
  Sender: FDA-Public Use
  Company Number: SU-2007-005917

PATIENT
  Age: 82 Year
  Sex: Male
  Weight: 75.7507 kg

DRUGS (3)
  1. WELCHOL [Suspect]
     Indication: SHORT-BOWEL SYNDROME
     Dosage: 1875 MG BID PO
     Route: 048
     Dates: start: 20060101
  2. LOMOTIL [Concomitant]
  3. VITAMINS [Concomitant]

REACTIONS (4)
  - CEREBELLAR ATAXIA [None]
  - COGNITIVE DISORDER [None]
  - GENERAL PHYSICAL HEALTH DETERIORATION [None]
  - WEIGHT DECREASED [None]
